FAERS Safety Report 12116533 (Version 1)
Quarter: 2016Q1

REPORT INFORMATION
  Report Type: Report from Study
  Country: US (occurrence: US)
  Receive Date: 20160225
  Receipt Date: 20160225
  Transmission Date: 20160526
  Serious: Yes (Other)
  Sender: FDA-Public Use
  Company Number: US-ACTELION-A-NJ2015-128674

PATIENT
  Age: 51 Year
  Sex: Male

DRUGS (1)
  1. MACITENTAN [Suspect]
     Active Substance: MACITENTAN
     Indication: PULMONARY ARTERIAL HYPERTENSION
     Dosage: 10 MG, QD
     Route: 048
     Dates: start: 20150618

REACTIONS (5)
  - Pain in extremity [Unknown]
  - Atrial fibrillation [Unknown]
  - Arthritis [Unknown]
  - Pain [Unknown]
  - Liver function test increased [Unknown]
